FAERS Safety Report 7970888-6 (Version None)
Quarter: 2011Q4

REPORT INFORMATION
  Report Type: 
  Country: None (occurrence: None)
  Receive Date: 20111212
  Receipt Date: 20111207
  Transmission Date: 20120403
  Serious: Yes (Death)
  Sender: FDA-Public Use
  Company Number: PHEH2011US011061

PATIENT
  Sex: Female

DRUGS (2)
  1. RECLAST [Suspect]
     Dosage: UNK
     Route: 042
     Dates: start: 20100601
  2. RECLAST [Suspect]
     Indication: SENILE OSTEOPOROSIS
     Dosage: UNK
     Route: 042
     Dates: start: 20090601

REACTIONS (1)
  - DEATH [None]
